FAERS Safety Report 7998306-2 (Version None)
Quarter: 2011Q4

REPORT INFORMATION
  Report Type: 
  Country: None (occurrence: None)
  Receive Date: 20111221
  Receipt Date: 20110628
  Transmission Date: 20120403
  Serious: No
  Sender: FDA-Public Use
  Company Number: US-GLAXOSMITHKLINE-A0933463A

PATIENT
  Age: 73 Year
  Sex: Female

DRUGS (13)
  1. METFORMIN HCL [Concomitant]
  2. ALLOPURINOL [Concomitant]
  3. VITAMIN E [Concomitant]
  4. LOVAZA [Suspect]
     Indication: BLOOD TRIGLYCERIDES INCREASED
     Dosage: 2CAP TWICE PER DAY
     Route: 048
     Dates: start: 20101001
  5. DIGITALIS TAB [Concomitant]
  6. LANOXIN [Concomitant]
  7. AMIDRONE [Concomitant]
  8. NAPROSYN [Concomitant]
  9. EXFORGE [Concomitant]
  10. DYAZIDE [Concomitant]
  11. GLIPIZIDE [Concomitant]
  12. FOLIC ACID [Concomitant]
  13. ASPIRIN [Concomitant]

REACTIONS (2)
  - BACK PAIN [None]
  - BLOOD GLUCOSE INCREASED [None]
